FAERS Safety Report 6790809-1 (Version None)
Quarter: 2010Q2

REPORT INFORMATION
  Report Type: 
  Country: None (occurrence: None)
  Receive Date: 20100624
  Receipt Date: 20100611
  Transmission Date: 20101027
  Serious: Yes (Hospitalization)
  Sender: FDA-Public Use
  Company Number: US-ELI_LILLY_AND_COMPANY-US200912005946

PATIENT
  Sex: Female
  Weight: 56.236 kg

DRUGS (8)
  1. FORTEO [Suspect]
     Indication: OSTEOPOROSIS POSTMENOPAUSAL
     Dosage: 20 UG, DAILY (1/D)
     Dates: start: 20090414
  2. FORTEO [Suspect]
     Dosage: 20 UG, DAILY (1/D)
  3. CLONIDINE [Concomitant]
     Indication: CONVULSION
     Dosage: 0.2 MG, DAILY (1/D)
  4. ATENOLOL [Concomitant]
     Indication: HYPERTENSION
     Dosage: 50 MG, UNKNOWN
  5. NAPROXEN [Concomitant]
     Indication: BACK PAIN
     Dosage: 500 MG, 2/D
     Dates: start: 20100217
  6. LEVETIRACETAM [Concomitant]
     Dosage: 50 MG, UNKNOWN
  7. PREVACID [Concomitant]
     Dosage: 30 MG, UNKNOWN
  8. MAGNESIUM OXIDE [Concomitant]
     Dosage: 400 MG, UNK

REACTIONS (9)
  - EXCORIATION [None]
  - FALL [None]
  - MENTAL STATUS CHANGES [None]
  - MUSCLE SPASMS [None]
  - OSTEOPENIA [None]
  - SKULL FRACTURE [None]
  - SUBARACHNOID HAEMORRHAGE [None]
  - SUBDURAL HAEMATOMA [None]
  - WRIST FRACTURE [None]
